FAERS Safety Report 4460436-X (Version None)
Quarter: 2004Q3

REPORT INFORMATION
  Report Type: 
  Country: None (occurrence: None)
  Receive Date: 20040928
  Receipt Date: 20040712
  Transmission Date: 20050211
  Serious: No
  Sender: FDA-Public Use
  Company Number: US-GLAXOSMITHKLINE-A0517852A

PATIENT
  Age: 47 Year
  Sex: Female

DRUGS (8)
  1. SEREVENT [Suspect]
     Dosage: 1PUFF TWICE PER DAY
     Route: 055
     Dates: start: 20000501, end: 20040601
  2. ATROVENT [Suspect]
     Indication: ILL-DEFINED DISORDER
  3. QVAR 40 [Concomitant]
  4. BIAXIN [Concomitant]
  5. PRILOSEC [Concomitant]
  6. ZYRTEC [Concomitant]
  7. FLONASE [Concomitant]
  8. ALLERGY SHOTS [Concomitant]

REACTIONS (1)
  - TACHYCARDIA [None]
